FAERS Safety Report 7663667-0 (Version None)
Quarter: 2011Q3

REPORT INFORMATION
  Report Type: 
  Country: None (occurrence: None)
  Receive Date: 20110805
  Receipt Date: 20100818
  Transmission Date: 20111222
  Serious: No
  Sender: FDA-Public Use
  Company Number: US-ABBOTT-10P-163-0664748-00

PATIENT
  Sex: Female
  Weight: 70.37 kg

DRUGS (9)
  1. LISINOPRIL [Concomitant]
     Indication: PRODUCT USED FOR UNKNOWN INDICATION
     Route: 048
  2. LIPITOR [Concomitant]
     Indication: PRODUCT USED FOR UNKNOWN INDICATION
     Route: 048
  3. EFFIENT [Concomitant]
     Indication: PRODUCT USED FOR UNKNOWN INDICATION
     Route: 048
  4. FISH OIL [Concomitant]
     Indication: PRODUCT USED FOR UNKNOWN INDICATION
     Route: 048
  5. TOPROL-XL [Concomitant]
     Indication: PRODUCT USED FOR UNKNOWN INDICATION
     Route: 048
  6. NIASPAN [Suspect]
     Dosage: DAILY AT BEDTIME
     Route: 048
  7. PROTONIX [Concomitant]
     Indication: GASTRIC DISORDER
     Route: 048
  8. NIASPAN [Suspect]
     Indication: CORONARY ARTERY DISEASE
     Dosage: DAILY AT BEDTIME
     Route: 048
     Dates: start: 20100718
  9. ASPIRIN [Concomitant]
     Indication: PRODUCT USED FOR UNKNOWN INDICATION
     Dosage: HALF AN HOUR BEFORE NIASPAN DOSE
     Route: 048

REACTIONS (3)
  - FLUSHING [None]
  - PRURITUS [None]
  - NAUSEA [None]
